FAERS Safety Report 9885578 (Version 6)
Quarter: 2015Q4

REPORT INFORMATION
  Report Type: Report from Study
  Country: IE (occurrence: IE)
  Receive Date: 20140210
  Receipt Date: 20151120
  Transmission Date: 20160305
  Serious: Yes (Other)
  Sender: FDA-Public Use
  Company Number: IE-VERTEX PHARMACEUTICALS INC-2014-000579

PATIENT
  Age: 37 Year
  Sex: Female
  Weight: 51 kg

DRUGS (16)
  1. HEPSAL [Concomitant]
     Indication: INFECTIVE PULMONARY EXACERBATION OF CYSTIC FIBROSIS
     Dosage: 500 IU, TID
     Route: 051
     Dates: start: 20140107
  2. LANSOPRAZOL [Concomitant]
     Active Substance: LANSOPRAZOLE
     Indication: GASTROOESOPHAGEAL REFLUX DISEASE
     Dosage: 20 MG, BID
     Route: 048
     Dates: start: 2009
  3. AVAMYS [Concomitant]
     Active Substance: FLUTICASONE FUROATE
     Indication: SINUSITIS
     Dosage: UNK, PRN
     Route: 045
     Dates: start: 2013
  4. VX-809/VX-770 COMBINATION [Suspect]
     Active Substance: IVACAFTOR\LUMACAFTOR
     Indication: CYSTIC FIBROSIS
     Dosage: LUMACAFTOR 400 MG/IVACAFTOR 250 MG BID
     Route: 048
     Dates: start: 20140120
  5. APIDRA [Concomitant]
     Active Substance: INSULIN GLULISINE
     Indication: DIABETES MELLITUS
     Dosage: 4-10 IU
     Route: 058
     Dates: start: 2010
  6. NEILMED SINUS RINSE [Concomitant]
     Active Substance: SODIUM BICARBONATE\SODIUM CHLORIDE
     Indication: SINUSITIS
     Dosage: UNK, PRN
     Route: 045
     Dates: start: 2013
  7. TEMOCILLIN [Suspect]
     Active Substance: TEMOCILLIN
     Dosage: 2 G, BID
     Route: 042
     Dates: start: 20140117
  8. LEVEMIR [Concomitant]
     Active Substance: INSULIN DETEMIR
     Indication: DIABETES MELLITUS
     Dosage: 4 ML, UNK
     Route: 058
     Dates: start: 2013
  9. CAYSTON [Concomitant]
     Active Substance: AZTREONAM
     Indication: PSEUDOMONAS INFECTION
     Dosage: 75 MG, TID
     Route: 055
     Dates: start: 2013
  10. TOBRAMYCIN. [Concomitant]
     Active Substance: TOBRAMYCIN
     Indication: INFECTIVE PULMONARY EXACERBATION OF CYSTIC FIBROSIS
  11. AQUADEKS [Concomitant]
     Indication: HYPOVITAMINOSIS
     Dosage: 2 DF, QD
     Route: 048
     Dates: start: 2011
  12. AZITHROMYCIN [Concomitant]
     Active Substance: AZITHROMYCIN ANHYDROUS
     Indication: INFECTIVE PULMONARY EXACERBATION OF CYSTIC FIBROSIS
     Dosage: 500 MG, UNK
     Route: 048
     Dates: start: 1990
  13. COLOMYCIN [Suspect]
     Active Substance: COLISTIN
     Dosage: 1 DF, TID
     Route: 042
     Dates: start: 20140117
  14. FOSFOMYCIN [Suspect]
     Active Substance: FOSFOMYCIN
     Dosage: 4 G, TID
     Route: 042
     Dates: start: 20140117
  15. CREON [Concomitant]
     Active Substance: PANCRELIPASE AMYLASE\PANCRELIPASE LIPASE\PANCRELIPASE PROTEASE
     Indication: PANCREATIC INSUFFICIENCY
     Dosage: 10000 UNK, PRN
     Route: 048
     Dates: start: 2013
  16. CALCICHEW [Concomitant]
     Active Substance: CALCIUM CARBONATE
     Indication: HYPOVITAMINOSIS
     Dosage: 1 DF, QD
     Route: 048
     Dates: start: 2013

REACTIONS (1)
  - Nephrotic syndrome [Recovered/Resolved]

NARRATIVE: CASE EVENT DATE: 20140124
